FAERS Safety Report 9498674 (Version 1)
Quarter: 2013Q3

REPORT INFORMATION
  Report Type: Spontaneous
  Country: FR (occurrence: FR)
  Receive Date: 20130904
  Receipt Date: 20130904
  Transmission Date: 20140515
  Serious: Yes (Other)
  Sender: FDA-Public Use
  Company Number: FR-PFIZER INC-2013249194

PATIENT
  Sex: Male

DRUGS (1)
  1. BOSULIF [Suspect]
     Dosage: UNK
     Dates: start: 201306, end: 201307

REACTIONS (1)
  - Skin toxicity [Unknown]
